FAERS Safety Report 13673438 (Version 1)
Quarter: 2017Q2

REPORT INFORMATION
  Report Type: Spontaneous
  Country: US (occurrence: US)
  Receive Date: 20170621
  Receipt Date: 20170621
  Transmission Date: 20170830
  Serious: No
  Sender: FDA-Public Use
  Company Number: US-TEVA-687942USA

PATIENT
  Sex: Female

DRUGS (2)
  1. SURMONTIL [Suspect]
     Active Substance: TRIMIPRAMINE MALEATE
     Indication: ANXIETY
  2. SURMONTIL [Suspect]
     Active Substance: TRIMIPRAMINE MALEATE
     Indication: DEPRESSION
     Route: 065

REACTIONS (7)
  - Anxiety [Unknown]
  - Drug ineffective [Unknown]
  - Adverse event [Unknown]
  - Product substitution issue [Unknown]
  - Dyspnoea [Unknown]
  - Feeling abnormal [Unknown]
  - Product quality issue [Unknown]

NARRATIVE: CASE EVENT DATE: 2016
